FAERS Safety Report 23641087 (Version 3)
Quarter: 2024Q4

REPORT INFORMATION
  Report Type: Spontaneous
  Country: SE (occurrence: SE)
  Receive Date: 20240318
  Receipt Date: 20241004
  Transmission Date: 20250114
  Serious: Yes (Other)
  Sender: TEVA
  Company Number: None

PATIENT
  Age: 46 Year
  Sex: Female
  Weight: 81 kg

DRUGS (10)
  1. AJOVY [Suspect]
     Active Substance: FREMANEZUMAB-VFRM
     Indication: Migraine
     Dosage: 3 INJECTIONS OF 225MG DOSE: SECOND DOSE
     Route: 058
     Dates: start: 20240109, end: 20240206
  2. LOPERAMIDE [Concomitant]
     Active Substance: LOPERAMIDE
     Indication: Product used for unknown indication
     Dosage: 2-6MG/DAY, LOPERAMID ABECE
     Route: 048
     Dates: start: 20090101
  3. LOPERAMIDE [Concomitant]
     Active Substance: LOPERAMIDE
     Indication: Product used for unknown indication
     Dosage: LOPERAMID ABECE
     Route: 048
  4. BUPROPION BLUEFISH [Concomitant]
     Indication: Product used for unknown indication
     Dosage: 1+0+0
     Route: 048
     Dates: start: 20090101
  5. BUPROPION BLUEFISH [Concomitant]
     Indication: Product used for unknown indication
     Route: 048
  6. Fluoxetin Ebb [Concomitant]
     Indication: Product used for unknown indication
     Dosage: 20MG3+0+0
     Route: 048
     Dates: start: 20040101
  7. Fluoxetin Ebb [Concomitant]
     Indication: Product used for unknown indication
     Route: 048
  8. PROPIOMAZINE [Concomitant]
     Active Substance: PROPIOMAZINE
     Indication: Product used for unknown indication
     Dosage: 2TN
     Route: 048
     Dates: start: 20040101
  9. PROPIOMAZINE [Concomitant]
     Active Substance: PROPIOMAZINE
     Indication: Product used for unknown indication
     Route: 048
  10. IMOVANE [Concomitant]
     Active Substance: ZOPICLONE
     Indication: Product used for unknown indication
     Dosage: 1TN
     Route: 048
     Dates: start: 20090101

REACTIONS (8)
  - Injection site rash [Not Recovered/Not Resolved]
  - Throat irritation [Not Recovered/Not Resolved]
  - Urticaria [Not Recovered/Not Resolved]
  - Injection site warmth [Not Recovered/Not Resolved]
  - Hypersensitivity [Not Recovered/Not Resolved]
  - Lip pain [Not Recovered/Not Resolved]
  - Injection site pain [Not Recovered/Not Resolved]
  - Injection site erythema [Not Recovered/Not Resolved]

NARRATIVE: CASE EVENT DATE: 20240211
